FAERS Safety Report 9132002 (Version 1)
Quarter: 2013Q1

REPORT INFORMATION
  Report Type: Report from Study
  Country: US (occurrence: US)
  Receive Date: 20130301
  Receipt Date: 20130301
  Transmission Date: 20140127
  Serious: No
  Sender: FDA-Public Use
  Company Number: US-MYLANLABS-2013S1000162

PATIENT
  Age: 15 Year
  Sex: Female

DRUGS (4)
  1. AMNESTEEM CAPSULES [Suspect]
     Indication: ACNE
     Route: 048
     Dates: start: 201207, end: 20121121
  2. AMNESTEEM CAPSULES [Suspect]
     Indication: ACNE
     Route: 048
     Dates: start: 20121126, end: 20121211
  3. CLARAVIS [Suspect]
     Indication: ACNE
  4. ZYRTEC [Concomitant]
     Route: 048

REACTIONS (1)
  - Tinnitus [Not Recovered/Not Resolved]
